FAERS Safety Report 8539734-6 (Version None)
Quarter: 2012Q3

REPORT INFORMATION
  Report Type: 
  Country: None (occurrence: None)
  Receive Date: 20120726
  Receipt Date: 20120312
  Transmission Date: 20120928
  Serious: No
  Sender: FDA-Public Use
  Company Number: US-ASTRAZENECA-2010SE08971

PATIENT
  Age: 63 Year
  Sex: Female

DRUGS (5)
  1. SEROQUEL [Suspect]
     Indication: SLEEP DISORDER
     Route: 048
  2. SEROQUEL [Suspect]
     Route: 048
  3. LYRICA [Concomitant]
  4. SEROQUEL [Suspect]
     Route: 048
  5. MORPHINE SULFATE [Concomitant]

REACTIONS (5)
  - INSOMNIA [None]
  - DRUG DOSE OMISSION [None]
  - DRUG INEFFECTIVE FOR UNAPPROVED INDICATION [None]
  - ROAD TRAFFIC ACCIDENT [None]
  - OFF LABEL USE [None]
